FAERS Safety Report 10846828 (Version 1)
Quarter: 2015Q1

REPORT INFORMATION
  Report Type: Spontaneous
  Country: GB (occurrence: GB)
  Receive Date: 20150220
  Receipt Date: 20150220
  Transmission Date: 20150721
  Serious: Yes (Other)
  Sender: FDA-Public Use
  Company Number: GB-GALDERMA-GB14004305

PATIENT
  Age: 35 Year
  Sex: Male
  Weight: 80 kg

DRUGS (1)
  1. MIRVASO [Suspect]
     Active Substance: BRIMONIDINE TARTRATE
     Indication: FLUSHING
     Dosage: 3 MG/G
     Route: 061
     Dates: start: 20140801, end: 20141030

REACTIONS (10)
  - Crying [Unknown]
  - Hypersensitivity [Not Recovered/Not Resolved]
  - Swelling face [Unknown]
  - Urticaria [Unknown]
  - Skin irritation [Unknown]
  - Inappropriate schedule of drug administration [Unknown]
  - Reaction to drug excipients [Unknown]
  - Pruritus [Unknown]
  - Product use issue [Unknown]
  - Blister [Unknown]

NARRATIVE: CASE EVENT DATE: 201408
